FAERS Safety Report 6240669-2 (Version None)
Quarter: 2009Q2

REPORT INFORMATION
  Report Type: 
  Country: None (occurrence: None)
  Receive Date: 20090623
  Receipt Date: 20081222
  Transmission Date: 20091009
  Serious: No
  Sender: FDA-Public Use
  Company Number: US-ASTRAZENECA-2008UW28525

PATIENT
  Age: 67 Year
  Sex: Female
  Weight: 79.4 kg

DRUGS (10)
  1. PULMICORT RESPULES [Suspect]
     Indication: CHRONIC OBSTRUCTIVE PULMONARY DISEASE
     Dosage: 0.5 MG, TWICE DAILY
     Route: 055
  2. AMBIEN [Concomitant]
     Dosage: PRN
  3. ZANTAC [Concomitant]
  4. LOVASTATIN [Concomitant]
  5. XANAX [Concomitant]
     Dosage: PRN
  6. ASPIRIN [Concomitant]
     Dosage: LOW DOSE
  7. SYNTHROID [Concomitant]
  8. COUMADIN [Concomitant]
  9. DILTIAZEM [Concomitant]
  10. ALBUTEROL [Concomitant]

REACTIONS (3)
  - MOUTH ULCERATION [None]
  - VERTIGO [None]
  - WRONG TECHNIQUE IN DRUG USAGE PROCESS [None]
